FAERS Safety Report 4909869-5 (Version None)
Quarter: 2006Q1

REPORT INFORMATION
  Report Type: 
  Country: None (occurrence: None)
  Receive Date: 20060208
  Receipt Date: 20060127
  Transmission Date: 20060701
  Serious: Yes (Hospitalization)
  Sender: FDA-Public Use
  Company Number: 2006US000193

PATIENT
  Age: 14 Month
  Sex: Male
  Weight: 8.8 kg

DRUGS (11)
  1. PROGRAF [Suspect]
     Indication: PROPHYLAXIS AGAINST TRANSPLANT REJECTION
  2. ZENAPAX [Suspect]
     Indication: RENAL TRANSPLANT
     Dosage: IV NOS
     Route: 042
     Dates: start: 20060119, end: 20060119
  3. ALBUTEROL [Concomitant]
  4. LASIX (FUROSEMIDE, FUROSEMIDE SODIUM) [Concomitant]
  5. PROAMATINE [Concomitant]
  6. CELLCEPT [Concomitant]
  7. VALGANCICLOVIR (VALGANCICLOVIR) [Concomitant]
  8. ASPIRIN [Concomitant]
  9. SEPTRA [Concomitant]
  10. PEPCID [Concomitant]
  11. PREDNISONE [Concomitant]

REACTIONS (9)
  - ATELECTASIS [None]
  - BLOOD BICARBONATE INCREASED [None]
  - BLOOD CREATINE DECREASED [None]
  - BLOOD GLUCOSE INCREASED [None]
  - BLOOD UREA DECREASED [None]
  - BRONCHIOLITIS [None]
  - HEART RATE INCREASED [None]
  - PULMONARY OEDEMA [None]
  - RHINORRHOEA [None]
